FAERS Safety Report 10016433 (Version 1)
Quarter: 2014Q1

REPORT INFORMATION
  Report Type: Other
  Country: IT (occurrence: IT)
  Receive Date: 20140317
  Receipt Date: 20140317
  Transmission Date: 20141002
  Serious: Yes (Other)
  Sender: FDA-Public Use
  Company Number: IT-BRISTOL-MYERS SQUIBB COMPANY-20478012

PATIENT
  Age: 25 Year
  Sex: Male

DRUGS (5)
  1. ETOPOSIDE [Suspect]
     Indication: GERM CELL CANCER
     Dosage: ON DAYS 1,2,3 AND 4.
  2. CARBOPLATIN [Suspect]
     Indication: GERM CELL CANCER
     Dosage: 1DF: AUC 20?ON DAYS 1,2,3 AND 4.
  3. CYCLOPHOSPHAMIDE [Suspect]
     Indication: GERM CELL CANCER
     Dosage: ON DAYS 1,2,3 AND 4.
  4. CISPLATIN [Concomitant]
  5. BLEOMYCIN [Concomitant]

REACTIONS (2)
  - Liver injury [Recovered/Resolved]
  - Alpha 1 foetoprotein increased [Recovered/Resolved]
